FAERS Safety Report 6006579-0 (Version None)
Quarter: 2008Q4

REPORT INFORMATION
  Report Type: 
  Country: None (occurrence: None)
  Receive Date: 20081217
  Receipt Date: 20081210
  Transmission Date: 20090506
  Serious: Yes (Life-Threatening)
  Sender: FDA-Public Use
  Company Number: MW-BRISTOL-MYERS SQUIBB COMPANY-14445159

PATIENT
  Age: 42 Year
  Sex: Male

DRUGS (6)
  1. EFAVIRENZ [Suspect]
     Indication: HIV INFECTION
     Route: 048
  2. SULFAMETHOXAZOLE AND TRIMETHOPRIM [Suspect]
  3. TRUVADA [Suspect]
     Indication: HIV INFECTION
     Dosage: 1 DOSAGE FORM = (TAB EMTRICITABINE 200MG(+) TENOFOVIR DISOPROXIL FUMARATE 300MG) ONCE DAILY
     Route: 048
  4. CHLORPHENIRAMINE MALEATE [Concomitant]
  5. INDOMETHACIN [Concomitant]
  6. PYRIDOXINE HCL [Concomitant]

REACTIONS (1)
  - NEUTROPENIA [None]
